FAERS Safety Report 9484887 (Version 2)
Quarter: 2013Q4

REPORT INFORMATION
  Report Type: Spontaneous
  Country: US (occurrence: US)
  Receive Date: 20130828
  Receipt Date: 20131004
  Transmission Date: 20140711
  Serious: Yes (Hospitalization)
  Sender: FDA-Public Use
  Company Number: US-GILEAD-2013-0082188

PATIENT
  Sex: Female

DRUGS (2)
  1. LETAIRIS [Suspect]
     Indication: PULMONARY HYPERTENSION
     Dosage: 5 MG, QD
     Route: 048
     Dates: start: 20111116
  2. ADCIRCA [Concomitant]

REACTIONS (5)
  - Blood disorder [Unknown]
  - Dyspnoea [Unknown]
  - Fatigue [Unknown]
  - Anaemia [Unknown]
  - Dyspnoea [Unknown]
